FAERS Safety Report 5373749-4 (Version None)
Quarter: 2007Q2

REPORT INFORMATION
  Report Type: 
  Country: None (occurrence: None)
  Receive Date: 20070628
  Receipt Date: 20070619
  Transmission Date: 20071010
  Serious: Yes (Other)
  Sender: FDA-Public Use
  Company Number: HU-ELI_LILLY_AND_COMPANY-HU200706004396

PATIENT
  Age: 76 Year
  Sex: Male

DRUGS (1)
  1. HUMULIN R [Suspect]
     Indication: DIABETES MELLITUS

REACTIONS (6)
  - CARDIAC DISORDER [None]
  - GAIT DISTURBANCE [None]
  - NO ADVERSE EFFECT [None]
  - OEDEMA PERIPHERAL [None]
  - POOR PERIPHERAL CIRCULATION [None]
  - PULMONARY OEDEMA [None]
